FAERS Safety Report 6692236-4 (Version None)
Quarter: 2010Q2

REPORT INFORMATION
  Report Type: 
  Country: None (occurrence: None)
  Receive Date: 20100419
  Receipt Date: 20100408
  Transmission Date: 20101027
  Serious: Yes (Death)
  Sender: FDA-Public Use
  Company Number: 1000013162

PATIENT
  Age: 1 Week

DRUGS (1)
  1. CARBAMAZEPINE [Suspect]
     Dosage: 300 MG (30 MG, 1 IN 1 D), TRANSPLACENTAL; 200 MG (200 MG, 1 IN 1 D), TRANSPLACENTAL
     Route: 064

REACTIONS (3)
  - CAESAREAN SECTION [None]
  - MATERNAL DRUGS AFFECTING FOETUS [None]
  - SUDDEN INFANT DEATH SYNDROME [None]
